FAERS Safety Report 6428560-X (Version None)
Quarter: 2009Q4

REPORT INFORMATION
  Report Type: 
  Country: None (occurrence: None)
  Receive Date: 20091104
  Receipt Date: 20091104
  Transmission Date: 20100525
  Serious: Yes (Other)
  Sender: FDA-Public Use
  Company Number: None

PATIENT
  Sex: Female
  Weight: 59.5 kg

DRUGS (1)
  1. AZITHROMYCIN [Suspect]
     Indication: LUNG INFECTION
     Dosage: 250 MG 2 TABLETS TODAY THEN 1 TABLET FOR 4 DAYS
     Dates: start: 20091101, end: 20091102

REACTIONS (5)
  - PRURITUS [None]
  - PYREXIA [None]
  - SWELLING [None]
  - SYNCOPE [None]
  - URINARY INCONTINENCE [None]
